FAERS Safety Report 17202360 (Version 1)
Quarter: 2019Q4

REPORT INFORMATION
  Report Type: Spontaneous
  Country: BE (occurrence: BE)
  Receive Date: 20191226
  Receipt Date: 20191226
  Transmission Date: 20200122
  Serious: Yes (Other)
  Sender: FDA-Public Use
  Company Number: BE-METUCHEN-STN-2019-0349

PATIENT
  Age: 55 Year
  Sex: Male

DRUGS (2)
  1. SILDENAFIL. [Suspect]
     Active Substance: SILDENAFIL
     Indication: PRODUCT USED FOR UNKNOWN INDICATION
  2. SPEDRA (AVANAFIL) TABLETS [Suspect]
     Active Substance: AVANAFIL
     Indication: ERECTILE DYSFUNCTION
     Dosage: ONE HALF OF 200MG TABLET
     Route: 048
     Dates: start: 20180405, end: 20180405

REACTIONS (8)
  - Contraindicated product administered [Recovered/Resolved]
  - Feeling of relaxation [Unknown]
  - Erectile dysfunction [Unknown]
  - Penis disorder [Unknown]
  - Incorrect dose administered [Unknown]
  - Musculoskeletal pain [Unknown]
  - Intentional product misuse [Recovered/Resolved]
  - Confusional state [Unknown]

NARRATIVE: CASE EVENT DATE: 20180405
